FAERS Safety Report 11815928 (Version 1)
Quarter: 2015Q4

REPORT INFORMATION
  Report Type: Spontaneous
  Country: GB (occurrence: GB)
  Receive Date: 20151209
  Receipt Date: 20151209
  Transmission Date: 20160305
  Serious: Yes (Other)
  Sender: FDA-Public Use
  Company Number: GB-SA-2015SA199797

PATIENT
  Age: 60 Year
  Sex: Male

DRUGS (3)
  1. ALLOPURINOL. [Concomitant]
     Active Substance: ALLOPURINOL
     Indication: GOUT
     Dosage: INTERMITTENT.
  2. PLERIXAFOR [Suspect]
     Active Substance: PLERIXAFOR
     Indication: BLOOD STEM CELL HARVEST
     Route: 058
     Dates: start: 20140908, end: 20140909
  3. FILGRASTIM [Concomitant]
     Active Substance: FILGRASTIM
     Indication: GOUT
     Dosage: INTERMITTENT.

REACTIONS (1)
  - Acute myeloid leukaemia [Not Recovered/Not Resolved]

NARRATIVE: CASE EVENT DATE: 20151112
